FAERS Safety Report 24467564 (Version 1)
Quarter: 2024Q4

REPORT INFORMATION
  Report Type: Spontaneous
  Country: US (occurrence: US)
  Receive Date: 20241018
  Receipt Date: 20241018
  Transmission Date: 20250114
  Serious: No
  Sender: ROCHE
  Company Number: US-ROCHE-3564525

PATIENT
  Age: 61 Year
  Sex: Male

DRUGS (3)
  1. XOLAIR [Suspect]
     Active Substance: OMALIZUMAB
     Indication: Product used for unknown indication
     Route: 065
  2. XOLAIR [Suspect]
     Active Substance: OMALIZUMAB
     Route: 065
  3. DUPIXENT [Suspect]
     Active Substance: DUPILUMAB
     Indication: Dermatitis atopic
     Dosage: SINGLE DOSE PRE-FILLED PEN STRENGTH: 150MG/ML
     Route: 058

REACTIONS (4)
  - COVID-19 [Unknown]
  - Urticaria [Unknown]
  - Blood immunoglobulin E increased [Unknown]
  - Off label use [Unknown]
